FAERS Safety Report 8256970-7 (Version None)
Quarter: 2012Q2

REPORT INFORMATION
  Report Type: 
  Country: None (occurrence: None)
  Receive Date: 20120403
  Receipt Date: 20120330
  Transmission Date: 20120825
  Serious: Yes (Hospitalization)
  Sender: FDA-Public Use
  Company Number: US-GLAXOSMITHKLINE-A0794724A

PATIENT
  Age: 57 Year
  Sex: Male
  Weight: 107.7 kg

DRUGS (7)
  1. CARDIZEM [Concomitant]
  2. LIPITOR [Concomitant]
  3. ALLOPURINOL [Concomitant]
  4. SYNTHROID [Concomitant]
  5. METOPROLOL SUCCINATE [Concomitant]
  6. GLUCOPHAGE [Concomitant]
  7. AVANDIA [Suspect]
     Indication: DIABETES MELLITUS
     Dosage: 4MG PER DAY
     Route: 048
     Dates: start: 20021216, end: 20070424

REACTIONS (9)
  - AMNESIA [None]
  - ASTHENIA [None]
  - CARDIAC FAILURE CONGESTIVE [None]
  - MYOCARDIAL INFARCTION [None]
  - CORONARY ARTERY OCCLUSION [None]
  - EXERCISE TOLERANCE DECREASED [None]
  - ISCHAEMIC CARDIOMYOPATHY [None]
  - ISCHAEMIA [None]
  - CORONARY ARTERY STENOSIS [None]
